FAERS Safety Report 6711769-5 (Version None)
Quarter: 2010Q2

REPORT INFORMATION
  Report Type: 
  Country: None (occurrence: None)
  Receive Date: 20100505
  Receipt Date: 20100426
  Transmission Date: 20101027
  Serious: Yes (Life-Threatening, Hospitalization)
  Sender: FDA-Public Use
  Company Number: B0639736A

PATIENT
  Sex: Male
  Weight: 71 kg

DRUGS (6)
  1. ARIXTRA [Suspect]
     Dosage: 7.5MG PER DAY
     Route: 058
     Dates: start: 20100216, end: 20100306
  2. PERMIXON 160 [Concomitant]
     Route: 065
  3. SEROPLEX [Concomitant]
     Route: 065
  4. XANAX [Concomitant]
     Route: 065
  5. PARIET [Concomitant]
     Route: 065
  6. TAMSULOSINE [Concomitant]
     Route: 065

REACTIONS (5)
  - AGGRESSION [None]
  - CEREBRAL HAEMORRHAGE [None]
  - CONFUSIONAL STATE [None]
  - GAIT DISTURBANCE [None]
  - SPEECH DISORDER [None]
